FAERS Safety Report 8082841-5 (Version None)
Quarter: 2012Q1

REPORT INFORMATION
  Report Type: 
  Country: None (occurrence: None)
  Receive Date: 20120127
  Receipt Date: 20110121
  Transmission Date: 20120608
  Serious: No
  Sender: FDA-Public Use
  Company Number: US-ABBOTT-11P-163-0700416-00

PATIENT
  Sex: Female
  Weight: 49.486 kg

DRUGS (1)
  1. HUMIRA [Suspect]
     Indication: PSORIASIS
     Dates: start: 20090401

REACTIONS (5)
  - PAIN IN EXTREMITY [None]
  - BLISTER [None]
  - SKIN HYPERTROPHY [None]
  - SKIN HAEMORRHAGE [None]
  - SKIN FISSURES [None]
